FAERS Safety Report 6607710-6 (Version None)
Quarter: 2010Q1

REPORT INFORMATION
  Report Type: 
  Country: None (occurrence: None)
  Receive Date: 20100212
  Receipt Date: 20100112
  Transmission Date: 20100710
  Serious: No
  Sender: FDA-Public Use
  Company Number: 1000011244

PATIENT
  Age: 93 Year
  Sex: Female

DRUGS (11)
  1. SAVELLA [Suspect]
     Indication: FIBROMYALGIA
     Dosage: 12.5 MG (12.5 MG, 1 IN 1 D), ORAL; SEE IMAGE
     Route: 048
     Dates: start: 20091207, end: 20091207
  2. SAVELLA [Suspect]
     Indication: FIBROMYALGIA
     Dosage: 12.5 MG (12.5 MG, 1 IN 1 D), ORAL; SEE IMAGE
     Route: 048
     Dates: start: 20091208, end: 20091209
  3. SAVELLA [Suspect]
     Indication: FIBROMYALGIA
     Dosage: 12.5 MG (12.5 MG, 1 IN 1 D), ORAL; SEE IMAGE
     Route: 048
     Dates: start: 20091210, end: 20091213
  4. SAVELLA [Suspect]
     Indication: FIBROMYALGIA
     Dosage: 100 MG (50 MG, 2 IN 1 D), ORAL
     Route: 048
     Dates: start: 20091214, end: 20100106
  5. VERAPAMIL [Concomitant]
  6. MECLIZINE [Concomitant]
  7. OMEPRAZOLE [Concomitant]
  8. TIMOLOL MALEATE [Concomitant]
  9. DIOVAN [Concomitant]
  10. TEMAZEPAM [Concomitant]
  11. PERCOCET [Concomitant]

REACTIONS (2)
  - HALLUCINATION [None]
  - RESTLESSNESS [None]
